FAERS Safety Report 16615248 (Version 1)
Quarter: 2019Q3

REPORT INFORMATION
  Report Type: Spontaneous
  Country: US (occurrence: US)
  Receive Date: 20190723
  Receipt Date: 20190723
  Transmission Date: 20191004
  Serious: No
  Sender: FDA-Public Use
  Company Number: US-ALLERGAN-1852729US

PATIENT
  Sex: Male
  Weight: 70.3 kg

DRUGS (7)
  1. TRELSTAR [Suspect]
     Active Substance: TRIPTORELIN PAMOATE
     Indication: SUPPLEMENTATION THERAPY
     Dosage: 11.75 MG, SINGLE
     Route: 051
     Dates: start: 201807
  2. TRELSTAR [Suspect]
     Active Substance: TRIPTORELIN PAMOATE
     Dosage: 3.75 MG, SINGLE
     Route: 051
     Dates: start: 201804, end: 201806
  3. PROTON RADIATION TREATMENT [Concomitant]
     Indication: PROSTATE CANCER
     Dosage: UNK
     Route: 050
     Dates: end: 20180829
  4. HYZAR [Concomitant]
     Indication: PRODUCT USED FOR UNKNOWN INDICATION
     Dosage: UNK
     Route: 048
  5. TRELSTAR [Suspect]
     Active Substance: TRIPTORELIN PAMOATE
     Indication: PROSTATE CANCER
     Dosage: 3.75 MG, SINGLE
     Route: 051
     Dates: start: 201805, end: 20181001
  6. NORVASC [Concomitant]
     Active Substance: AMLODIPINE BESYLATE
     Indication: HYPERTENSION
     Route: 048
  7. CLARINEX [Concomitant]
     Active Substance: DESLORATADINE
     Indication: HYPERSENSITIVITY
     Route: 065

REACTIONS (3)
  - Hot flush [Recovering/Resolving]
  - Myalgia [Not Recovered/Not Resolved]
  - Fatigue [Recovering/Resolving]

NARRATIVE: CASE EVENT DATE: 2018
